FAERS Safety Report 17142085 (Version 1)
Quarter: 2019Q4

REPORT INFORMATION
  Report Type: Other
  Country: CN (occurrence: CN)
  Receive Date: 20191211
  Receipt Date: 20191211
  Transmission Date: 20200122
  Serious: Yes (Other)
  Sender: FDA-Public Use
  Company Number: CN-TOPROL ACQUISITION LLC-2019-TOP-001543

PATIENT
  Age: 72 Year
  Sex: Male
  Weight: 70 kg

DRUGS (8)
  1. CRESTOR [Suspect]
     Active Substance: ROSUVASTATIN CALCIUM
     Indication: HYPOLIPIDAEMIA
     Dosage: 10 MG, HS
     Route: 048
     Dates: start: 20191113, end: 20191116
  2. SPIRONOLACTONE. [Concomitant]
     Active Substance: SPIRONOLACTONE
     Indication: POLYURIA
     Dosage: 20 MG, QD
     Route: 048
     Dates: start: 20191113, end: 20191116
  3. TRANEXAMIC ACID. [Concomitant]
     Active Substance: TRANEXAMIC ACID
     Indication: HAEMOSTASIS
     Dosage: 2 G, QD
     Route: 042
     Dates: start: 20191113, end: 20191116
  4. METOPROLOL SUCCINATE. [Suspect]
     Active Substance: METOPROLOL SUCCINATE
     Indication: BLOOD PRESSURE INCREASED
     Dosage: 11.875 MG, BID
     Route: 048
     Dates: start: 20191113, end: 20191113
  5. ASPIRIN                            /00002701/ [Suspect]
     Active Substance: ASPIRIN
     Indication: COAGULOPATHY
     Dosage: 0.1 G, QD
     Route: 048
     Dates: start: 20191113, end: 20191115
  6. ETAMSYLATE [Concomitant]
     Active Substance: ETHAMSYLATE
     Indication: HAEMOSTASIS
     Dosage: 2000 MG, QD
     Route: 042
     Dates: start: 20191113, end: 20191116
  7. FUROSEMIDE. [Concomitant]
     Active Substance: FUROSEMIDE
     Indication: POLYURIA
     Dosage: 10 MG, QD
     Route: 048
     Dates: start: 20191113, end: 20191116
  8. GANGLIOSIDES [Concomitant]
     Indication: CEREBRAL INFARCTION
     Dosage: 10 ML, QD
     Route: 042
     Dates: start: 20191113, end: 20191116

REACTIONS (3)
  - Blood urea increased [Unknown]
  - Hyperuricaemia [Unknown]
  - Liver injury [Unknown]

NARRATIVE: CASE EVENT DATE: 20191115
